FAERS Safety Report 17529047 (Version 2)
Quarter: 2022Q1

REPORT INFORMATION
  Report Type: Spontaneous
  Country: DK (occurrence: DK)
  Receive Date: 20200312
  Receipt Date: 20220325
  Transmission Date: 20220423
  Serious: Yes (Hospitalization, Other)
  Sender: FDA-Public Use
  Company Number: DK-BRISTOL-MYERS SQUIBB COMPANY-BMS-2020-021488

PATIENT
  Age: 69 Year
  Sex: Female

DRUGS (2)
  1. OPDIVO [Suspect]
     Active Substance: NIVOLUMAB
     Indication: Malignant melanoma
     Dosage: STYRKE: 10 MG/ML.
     Route: 042
     Dates: start: 20191104, end: 20200324
  2. OPDIVO [Suspect]
     Active Substance: NIVOLUMAB
     Indication: Malignant melanoma
     Route: 042
     Dates: start: 20191104, end: 202003

REACTIONS (15)
  - Diarrhoea [Recovered/Resolved]
  - Headache [Recovered/Resolved]
  - Vomiting [Recovered/Resolved]
  - Pyrexia [Recovered/Resolved]
  - Fatigue [Recovered/Resolved]
  - Hypophysitis [Unknown]
  - Cortisol decreased [Unknown]
  - Adrenal insufficiency [Not Recovered/Not Resolved]
  - Blood sodium decreased [Unknown]
  - Arthralgia [Recovered/Resolved]
  - Off label use [Unknown]
  - Rosacea [Unknown]
  - Hypopituitarism [Not Recovered/Not Resolved]
  - Rash pruritic [Unknown]
  - Papule [Unknown]

NARRATIVE: CASE EVENT DATE: 20191205
